FAERS Safety Report 13540310 (Version 1)
Quarter: 2017Q2

REPORT INFORMATION
  Report Type: Spontaneous
  Country: AU (occurrence: AU)
  Receive Date: 20170512
  Receipt Date: 20170512
  Transmission Date: 20170830
  Serious: Yes (Death, Hospitalization, Other)
  Sender: FDA-Public Use
  Company Number: AU-ALEMBIC PHARMACUETICALS LIMITED-2017SCAL000403

PATIENT

DRUGS (3)
  1. TEMAZEPAM. [Suspect]
     Active Substance: TEMAZEPAM
     Indication: PRODUCT USED FOR UNKNOWN INDICATION
     Dosage: 500 MG, UNK
  2. FLUOXETINE [Suspect]
     Active Substance: FLUOXETINE HYDROCHLORIDE
     Indication: PRODUCT USED FOR UNKNOWN INDICATION
  3. LAMOTRIGINE. [Suspect]
     Active Substance: LAMOTRIGINE
     Indication: PRODUCT USED FOR UNKNOWN INDICATION
     Dosage: 11 G, UNK

REACTIONS (7)
  - Clonus [Unknown]
  - Toxicity to various agents [Fatal]
  - Hyperthermia [Unknown]
  - Intentional overdose [Unknown]
  - Seizure [Unknown]
  - Multiple organ dysfunction syndrome [Unknown]
  - Cardiac arrest [Unknown]
